FAERS Safety Report 4999872-1 (Version None)
Quarter: 2006Q2

REPORT INFORMATION
  Report Type: 
  Country: None (occurrence: None)
  Receive Date: 20060510
  Receipt Date: 20060510
  Transmission Date: 20061013
  Serious: Yes (Life-Threatening, Hospitalization, Disabling)
  Sender: FDA-Public Use
  Company Number: None

PATIENT
  Age: 55 Year
  Sex: Male
  Weight: 100 kg

DRUGS (1)
  1. ERLOTONIB-TARCEVA- 150 MG [Suspect]
     Indication: PANCREATIC CARCINOMA
     Dosage: 150 MG DAILY PO
     Route: 048

REACTIONS (4)
  - DIFFUSE ALVEOLAR DAMAGE [None]
  - DYSPNOEA [None]
  - PNEUMONIA [None]
  - THERAPY NON-RESPONDER [None]
